FAERS Safety Report 6187644-4 (Version None)
Quarter: 2009Q2

REPORT INFORMATION
  Report Type: 
  Country: None (occurrence: None)
  Receive Date: 20090511
  Receipt Date: 20090429
  Transmission Date: 20091009
  Serious: Yes (Death)
  Sender: FDA-Public Use
  Company Number: SPV1-2009-00842

PATIENT
  Sex: Male

DRUGS (1)
  1. FOSRENOL [Suspect]
     Indication: RENAL FAILURE CHRONIC
     Dosage: 1000 MG, 3X/DAY:TID, ORAL
     Route: 048

REACTIONS (2)
  - DISEASE PROGRESSION [None]
  - RENAL FAILURE CHRONIC [None]
